FAERS Safety Report 5206123-1 (Version None)
Quarter: 2007Q1

REPORT INFORMATION
  Report Type: 
  Country: None (occurrence: None)
  Receive Date: 20070108
  Receipt Date: 20061228
  Transmission Date: 20070707
  Serious: Yes (Other)
  Sender: FDA-Public Use
  Company Number: 33267

PATIENT
  Age: 68 Year
  Sex: Male

DRUGS (1)
  1. ETOMIDATE [Suspect]
     Indication: SEDATION
     Dosage: 5 ML GIVEN EPIDURALLY
     Route: 008
     Dates: start: 20061228

REACTIONS (2)
  - INCORRECT ROUTE OF DRUG ADMINISTRATION [None]
  - MEDICATION ERROR [None]
